FAERS Safety Report 23420898 (Version 1)
Quarter: 2024Q1

REPORT INFORMATION
  Report Type: Spontaneous
  Country: CA (occurrence: CA)
  Receive Date: 20240119
  Receipt Date: 20240119
  Transmission Date: 20240410
  Serious: Yes (Other)
  Sender: FDA-Public Use
  Company Number: CA-002147023-NVSC2023CA122619

PATIENT
  Age: 48 Year
  Sex: Male
  Weight: 101 kg

DRUGS (2)
  1. CRESTOR [Suspect]
     Active Substance: ROSUVASTATIN CALCIUM
     Indication: Product used for unknown indication
     Dosage: 20 MG, QD
     Route: 065
     Dates: start: 20190118
  2. EZETIMIBE [Suspect]
     Active Substance: EZETIMIBE
     Indication: Product used for unknown indication
     Dosage: 10 MG, QD (2 WEEKS)
     Route: 048
     Dates: start: 20191114, end: 20191130

REACTIONS (6)
  - Arteriosclerosis coronary artery [Unknown]
  - Xanthoma [Unknown]
  - Atelectasis [Unknown]
  - Left ventricular dilatation [Unknown]
  - Cough [Unknown]
  - Rash pruritic [Recovered/Resolved]

NARRATIVE: CASE EVENT DATE: 20191130
